FAERS Safety Report 7249197 (Version 2)
Quarter: 2013Q3

REPORT INFORMATION
  Report Type: Spontaneous
  Country: None (occurrence: None)
  Receive Date: 20091231
  Receipt Date: 20130708
  Transmission Date: 20140515
  Serious: Yes (Other)
  Sender: FDA-Public Use
  Company Number: AUR-APL-2009-01580

PATIENT
  Age: 47 Year
  Sex: Male

DRUGS (2)
  1. RIBAVIRIN (RIBAVIRIN) [Suspect]
     Indication: HEPATITIS C
     Route: 048
     Dates: start: 200610
  2. PEGINTERFERON ALFA-2A [Suspect]
     Indication: HEPATITIS C
     Dosage: SQ
     Route: 058

REACTIONS (5)
  - Vision blurred [None]
  - Visual field defect [None]
  - Cataract nuclear [None]
  - Myopia [None]
  - Visual acuity reduced [None]
